FAERS Safety Report 22289652 (Version 1)
Quarter: 2023Q2

REPORT INFORMATION
  Report Type: Spontaneous
  Country: None (occurrence: ES)
  Receive Date: 20230505
  Receipt Date: 20230505
  Transmission Date: 20230721
  Serious: Yes (Other)
  Sender: FDA-Public Use
  Company Number: ES-B.Braun Medical Inc.-2141159

PATIENT
  Age: 66 Year
  Sex: Male

DRUGS (5)
  1. METRONIDAZOLE [Suspect]
     Active Substance: METRONIDAZOLE
     Indication: Clostridium difficile infection
  2. ADALIMUMAB [Concomitant]
     Active Substance: ADALIMUMAB
  3. FIDAXOMICIN [Suspect]
     Active Substance: FIDAXOMICIN
  4. VANCOMYCIN [Suspect]
     Active Substance: VANCOMYCIN
  5. ZINPLAVA [Suspect]
     Active Substance: BEZLOTOXUMAB

REACTIONS (2)
  - Clostridium difficile infection [Unknown]
  - Arthritis [Unknown]
